FAERS Safety Report 4739877-9 (Version None)
Quarter: 2005Q3

REPORT INFORMATION
  Report Type: 
  Country: None (occurrence: None)
  Receive Date: 20050805
  Receipt Date: 20050725
  Transmission Date: 20060218
  Serious: Yes (Hospitalization)
  Sender: FDA-Public Use
  Company Number: 2005105809

PATIENT
  Age: 16 Year
  Sex: Female
  Weight: 61.2356 kg

DRUGS (1)
  1. UNISOM [Suspect]
     Dosage: 32 LIQUIDCAPS ONCE, ORAL
     Route: 048
     Dates: start: 20050724, end: 20050724

REACTIONS (6)
  - CONVULSION [None]
  - DIZZINESS [None]
  - HEADACHE [None]
  - INTENTIONAL MISUSE [None]
  - OVERDOSE [None]
  - VOMITING [None]
